FAERS Safety Report 4726146-6 (Version None)
Quarter: 2005Q3

REPORT INFORMATION
  Report Type: 
  Country: None (occurrence: None)
  Receive Date: 20050727
  Receipt Date: 20050720
  Transmission Date: 20060218
  Serious: Yes (Death)
  Sender: FDA-Public Use
  Company Number: PHBS2005JP10447

PATIENT
  Age: 61 Year
  Sex: Female

DRUGS (6)
  1. CYCLOSPORINE [Suspect]
     Indication: PARANEOPLASTIC SYNDROME
     Dosage: 4 MG/KG/D
     Route: 048
  2. METHYLPREDNISOLONE SODIUM SUCCINATE [Concomitant]
     Indication: PARANEOPLASTIC SYNDROME
     Dosage: 1000 MG/D
  3. PREDNISOLONE [Concomitant]
     Indication: PARANEOPLASTIC SYNDROME
     Dosage: 60 MG/D
     Route: 048
  4. CYCLOPHOSPHAMIDE [Concomitant]
     Indication: DIFFUSE LARGE B-CELL LYMPHOMA
  5. DOXORUBICIN HYDROCHLORIDE [Concomitant]
     Indication: DIFFUSE LARGE B-CELL LYMPHOMA
  6. VINCRISTINE SULFATE [Concomitant]
     Indication: DIFFUSE LARGE B-CELL LYMPHOMA

REACTIONS (3)
  - PNEUMONIA STAPHYLOCOCCAL [None]
  - RENAL IMPAIRMENT [None]
  - SEPSIS [None]
